FAERS Safety Report 4733811-3 (Version None)
Quarter: 2005Q3

REPORT INFORMATION
  Report Type: 
  Country: None (occurrence: None)
  Receive Date: 20050729
  Receipt Date: 20050711
  Transmission Date: 20060218
  Serious: Yes (Hospitalization, Other)
  Sender: FDA-Public Use
  Company Number: GBS050717850

PATIENT
  Sex: Male

DRUGS (3)
  1. OLANZAPINE [Suspect]
     Dosage: 20 MG IN THE EVENING
  2. CLOZARIL [Concomitant]
  3. HALOPERIDOL [Concomitant]

REACTIONS (2)
  - GRAND MAL CONVULSION [None]
  - OBSTRUCTIVE AIRWAYS DISORDER [None]
